FAERS Safety Report 5447767-1 (Version None)
Quarter: 2007Q3

REPORT INFORMATION
  Report Type: 
  Country: None (occurrence: None)
  Receive Date: 20070910
  Receipt Date: 20070905
  Transmission Date: 20080115
  Serious: Yes (Death)
  Sender: FDA-Public Use
  Company Number: GB-ASTRAZENECA-2007AC01619

PATIENT
  Age: 20 Year
  Sex: Female

DRUGS (3)
  1. LIGNOCAINE [Suspect]
     Route: 042
  2. AMITRIPTYLINE HCL [Concomitant]
  3. MEFENAMIC ACID [Concomitant]

REACTIONS (1)
  - INTENTIONAL OVERDOSE [None]
